FAERS Safety Report 25023553 (Version 1)
Quarter: 2025Q1

REPORT INFORMATION
  Report Type: Spontaneous
  Country: CA (occurrence: CA)
  Receive Date: 20250228
  Receipt Date: 20250228
  Transmission Date: 20250408
  Serious: Yes (Other)
  Sender: MYLAN
  Company Number: CA-MYLANLABS-2025M1015589

PATIENT
  Sex: Female

DRUGS (300)
  1. GABAPENTIN [Suspect]
     Active Substance: GABAPENTIN
     Indication: Product used for unknown indication
  2. GABAPENTIN [Suspect]
     Active Substance: GABAPENTIN
     Route: 065
  3. GABAPENTIN [Suspect]
     Active Substance: GABAPENTIN
     Route: 065
  4. GABAPENTIN [Suspect]
     Active Substance: GABAPENTIN
  5. VENLAFAXINE HCL [Suspect]
     Active Substance: VENLAFAXINE HYDROCHLORIDE
     Indication: Product used for unknown indication
  6. VENLAFAXINE HCL [Suspect]
     Active Substance: VENLAFAXINE HYDROCHLORIDE
     Route: 065
  7. VENLAFAXINE HCL [Suspect]
     Active Substance: VENLAFAXINE HYDROCHLORIDE
     Route: 065
  8. VENLAFAXINE HCL [Suspect]
     Active Substance: VENLAFAXINE HYDROCHLORIDE
  9. ABACAVIR [Suspect]
     Active Substance: ABACAVIR
     Indication: Product used for unknown indication
  10. ABACAVIR [Suspect]
     Active Substance: ABACAVIR
     Route: 065
  11. ABACAVIR [Suspect]
     Active Substance: ABACAVIR
     Route: 065
  12. ABACAVIR [Suspect]
     Active Substance: ABACAVIR
  13. ABACAVIR SULFATE\LAMIVUDINE [Suspect]
     Active Substance: ABACAVIR SULFATE\LAMIVUDINE
     Indication: Product used for unknown indication
  14. ABACAVIR SULFATE\LAMIVUDINE [Suspect]
     Active Substance: ABACAVIR SULFATE\LAMIVUDINE
     Route: 065
  15. ABACAVIR SULFATE\LAMIVUDINE [Suspect]
     Active Substance: ABACAVIR SULFATE\LAMIVUDINE
     Route: 065
  16. ABACAVIR SULFATE\LAMIVUDINE [Suspect]
     Active Substance: ABACAVIR SULFATE\LAMIVUDINE
  17. ACETAMINOPHEN [Suspect]
     Active Substance: ACETAMINOPHEN
     Indication: Product used for unknown indication
  18. ACETAMINOPHEN [Suspect]
     Active Substance: ACETAMINOPHEN
     Route: 065
  19. ACETAMINOPHEN [Suspect]
     Active Substance: ACETAMINOPHEN
     Route: 065
  20. ACETAMINOPHEN [Suspect]
     Active Substance: ACETAMINOPHEN
  21. ACTEMRA [Suspect]
     Active Substance: TOCILIZUMAB
     Indication: Rheumatoid arthritis
     Route: 065
  22. ACTEMRA [Suspect]
     Active Substance: TOCILIZUMAB
  23. ACTEMRA [Suspect]
     Active Substance: TOCILIZUMAB
  24. ACTEMRA [Suspect]
     Active Substance: TOCILIZUMAB
     Route: 065
  25. ACTEMRA [Suspect]
     Active Substance: TOCILIZUMAB
     Dosage: 1000 MILLIGRAM, QD (1 EVERY 1 DAYS)
     Route: 058
  26. ACTEMRA [Suspect]
     Active Substance: TOCILIZUMAB
     Dosage: 1000 MILLIGRAM, QD (1 EVERY 1 DAYS)
  27. ACTEMRA [Suspect]
     Active Substance: TOCILIZUMAB
     Dosage: 1000 MILLIGRAM, QD (1 EVERY 1 DAYS)
  28. ACTEMRA [Suspect]
     Active Substance: TOCILIZUMAB
     Dosage: 1000 MILLIGRAM, QD (1 EVERY 1 DAYS)
     Route: 058
  29. ACTEMRA [Suspect]
     Active Substance: TOCILIZUMAB
     Dosage: 100 MILLIGRAM, QD (1 EVERY 1 DAYS)
  30. ACTEMRA [Suspect]
     Active Substance: TOCILIZUMAB
     Dosage: 100 MILLIGRAM, QD (1 EVERY 1 DAYS)
  31. ACTEMRA [Suspect]
     Active Substance: TOCILIZUMAB
     Dosage: 100 MILLIGRAM, QD (1 EVERY 1 DAYS)
     Route: 058
  32. ACTEMRA [Suspect]
     Active Substance: TOCILIZUMAB
     Dosage: 100 MILLIGRAM, QD (1 EVERY 1 DAYS)
     Route: 058
  33. ACTEMRA [Suspect]
     Active Substance: TOCILIZUMAB
     Dosage: 500 MILLIGRAM, QD (1 EVERY 1 DAYS)
  34. ACTEMRA [Suspect]
     Active Substance: TOCILIZUMAB
     Dosage: 500 MILLIGRAM, QD (1 EVERY 1 DAYS)
  35. ACTEMRA [Suspect]
     Active Substance: TOCILIZUMAB
     Dosage: 500 MILLIGRAM, QD (1 EVERY 1 DAYS)
     Route: 058
  36. ACTEMRA [Suspect]
     Active Substance: TOCILIZUMAB
     Dosage: 500 MILLIGRAM, QD (1 EVERY 1 DAYS)
     Route: 058
  37. ADVAIR HFA [Suspect]
     Active Substance: FLUTICASONE PROPIONATE\SALMETEROL XINAFOATE
     Indication: Product used for unknown indication
  38. ADVAIR HFA [Suspect]
     Active Substance: FLUTICASONE PROPIONATE\SALMETEROL XINAFOATE
  39. ADVAIR HFA [Suspect]
     Active Substance: FLUTICASONE PROPIONATE\SALMETEROL XINAFOATE
     Route: 065
  40. ADVAIR HFA [Suspect]
     Active Substance: FLUTICASONE PROPIONATE\SALMETEROL XINAFOATE
     Route: 065
  41. ADVAIR HFA [Suspect]
     Active Substance: FLUTICASONE PROPIONATE\SALMETEROL XINAFOATE
     Dosage: 500 MILLIGRAM, QD (1 EVERY 1 DAYS)
  42. ADVAIR HFA [Suspect]
     Active Substance: FLUTICASONE PROPIONATE\SALMETEROL XINAFOATE
     Dosage: 500 MILLIGRAM, QD (1 EVERY 1 DAYS)
  43. ADVAIR HFA [Suspect]
     Active Substance: FLUTICASONE PROPIONATE\SALMETEROL XINAFOATE
     Dosage: 500 MILLIGRAM, QD (1 EVERY 1 DAYS)
     Route: 065
  44. ADVAIR HFA [Suspect]
     Active Substance: FLUTICASONE PROPIONATE\SALMETEROL XINAFOATE
     Dosage: 500 MILLIGRAM, QD (1 EVERY 1 DAYS)
     Route: 065
  45. ADVAIR HFA [Suspect]
     Active Substance: FLUTICASONE PROPIONATE\SALMETEROL XINAFOATE
     Dosage: 1000 MILLIGRAM, QD (1 EVERY 1 DAYS)
  46. ADVAIR HFA [Suspect]
     Active Substance: FLUTICASONE PROPIONATE\SALMETEROL XINAFOATE
     Dosage: 1000 MILLIGRAM, QD (1 EVERY 1 DAYS)
     Route: 065
  47. ADVAIR HFA [Suspect]
     Active Substance: FLUTICASONE PROPIONATE\SALMETEROL XINAFOATE
     Dosage: 1000 MILLIGRAM, QD (1 EVERY 1 DAYS)
  48. ADVAIR HFA [Suspect]
     Active Substance: FLUTICASONE PROPIONATE\SALMETEROL XINAFOATE
     Dosage: 1000 MILLIGRAM, QD (1 EVERY 1 DAYS)
     Route: 065
  49. ALBUTEROL SULFATE [Suspect]
     Active Substance: ALBUTEROL SULFATE
     Indication: Product used for unknown indication
  50. ALBUTEROL SULFATE [Suspect]
     Active Substance: ALBUTEROL SULFATE
     Route: 065
  51. ALBUTEROL SULFATE [Suspect]
     Active Substance: ALBUTEROL SULFATE
     Route: 065
  52. ALBUTEROL SULFATE [Suspect]
     Active Substance: ALBUTEROL SULFATE
  53. ALBUTEROL [Suspect]
     Active Substance: ALBUTEROL
     Indication: Product used for unknown indication
  54. ALBUTEROL [Suspect]
     Active Substance: ALBUTEROL
     Route: 065
  55. ALBUTEROL [Suspect]
     Active Substance: ALBUTEROL
     Route: 065
  56. ALBUTEROL [Suspect]
     Active Substance: ALBUTEROL
  57. PANTOPRAZOLE SODIUM ANHYDROUS [Suspect]
     Active Substance: PANTOPRAZOLE SODIUM ANHYDROUS
     Indication: Product used for unknown indication
  58. PANTOPRAZOLE SODIUM ANHYDROUS [Suspect]
     Active Substance: PANTOPRAZOLE SODIUM ANHYDROUS
     Route: 065
  59. PANTOPRAZOLE SODIUM ANHYDROUS [Suspect]
     Active Substance: PANTOPRAZOLE SODIUM ANHYDROUS
     Route: 065
  60. PANTOPRAZOLE SODIUM ANHYDROUS [Suspect]
     Active Substance: PANTOPRAZOLE SODIUM ANHYDROUS
  61. BUPROPION HYDROCHLORIDE [Suspect]
     Active Substance: BUPROPION HYDROCHLORIDE
     Indication: Product used for unknown indication
  62. BUPROPION HYDROCHLORIDE [Suspect]
     Active Substance: BUPROPION HYDROCHLORIDE
     Route: 065
  63. BUPROPION HYDROCHLORIDE [Suspect]
     Active Substance: BUPROPION HYDROCHLORIDE
     Route: 065
  64. BUPROPION HYDROCHLORIDE [Suspect]
     Active Substance: BUPROPION HYDROCHLORIDE
  65. CETIRIZINE HYDROCHLORIDE [Suspect]
     Active Substance: CETIRIZINE HYDROCHLORIDE
     Indication: Product used for unknown indication
     Dosage: 20 MILLIGRAM, QD (1 EVERY 1 DAYS)
  66. CETIRIZINE HYDROCHLORIDE [Suspect]
     Active Substance: CETIRIZINE HYDROCHLORIDE
     Dosage: 20 MILLIGRAM, QD (1 EVERY 1 DAYS)
     Route: 065
  67. CETIRIZINE HYDROCHLORIDE [Suspect]
     Active Substance: CETIRIZINE HYDROCHLORIDE
     Dosage: 20 MILLIGRAM, QD (1 EVERY 1 DAYS)
     Route: 065
  68. CETIRIZINE HYDROCHLORIDE [Suspect]
     Active Substance: CETIRIZINE HYDROCHLORIDE
     Dosage: 20 MILLIGRAM, QD (1 EVERY 1 DAYS)
  69. CHLORMEZANONE [Suspect]
     Active Substance: CHLORMEZANONE
     Indication: Rheumatoid arthritis
  70. CHLORMEZANONE [Suspect]
     Active Substance: CHLORMEZANONE
     Route: 065
  71. CHLORMEZANONE [Suspect]
     Active Substance: CHLORMEZANONE
     Route: 065
  72. CHLORMEZANONE [Suspect]
     Active Substance: CHLORMEZANONE
  73. CITALOPRAM HYDROBROMIDE [Suspect]
     Active Substance: CITALOPRAM HYDROBROMIDE
     Indication: Product used for unknown indication
  74. CITALOPRAM HYDROBROMIDE [Suspect]
     Active Substance: CITALOPRAM HYDROBROMIDE
     Route: 065
  75. CITALOPRAM HYDROBROMIDE [Suspect]
     Active Substance: CITALOPRAM HYDROBROMIDE
     Route: 065
  76. CITALOPRAM HYDROBROMIDE [Suspect]
     Active Substance: CITALOPRAM HYDROBROMIDE
  77. CLONIDINE [Suspect]
     Active Substance: CLONIDINE
     Indication: Eczema
  78. CLONIDINE [Suspect]
     Active Substance: CLONIDINE
     Route: 065
  79. CLONIDINE [Suspect]
     Active Substance: CLONIDINE
     Route: 065
  80. CLONIDINE [Suspect]
     Active Substance: CLONIDINE
  81. CODEINE [Suspect]
     Active Substance: CODEINE
     Indication: Product used for unknown indication
  82. CODEINE [Suspect]
     Active Substance: CODEINE
     Route: 065
  83. CODEINE [Suspect]
     Active Substance: CODEINE
     Route: 065
  84. CODEINE [Suspect]
     Active Substance: CODEINE
  85. CRINONE [Suspect]
     Active Substance: PROGESTERONE
     Indication: Product used for unknown indication
  86. CRINONE [Suspect]
     Active Substance: PROGESTERONE
     Route: 065
  87. CRINONE [Suspect]
     Active Substance: PROGESTERONE
     Route: 065
  88. CRINONE [Suspect]
     Active Substance: PROGESTERONE
  89. CYCLOBENZAPRINE [Suspect]
     Active Substance: CYCLOBENZAPRINE
     Indication: Eczema
  90. CYCLOBENZAPRINE [Suspect]
     Active Substance: CYCLOBENZAPRINE
     Route: 065
  91. CYCLOBENZAPRINE [Suspect]
     Active Substance: CYCLOBENZAPRINE
     Route: 065
  92. CYCLOBENZAPRINE [Suspect]
     Active Substance: CYCLOBENZAPRINE
  93. DEMEROL [Suspect]
     Active Substance: MEPERIDINE HYDROCHLORIDE
     Indication: Product used for unknown indication
  94. DEMEROL [Suspect]
     Active Substance: MEPERIDINE HYDROCHLORIDE
     Route: 065
  95. DEMEROL [Suspect]
     Active Substance: MEPERIDINE HYDROCHLORIDE
     Route: 065
  96. DEMEROL [Suspect]
     Active Substance: MEPERIDINE HYDROCHLORIDE
  97. DICLOFENAC SODIUM [Suspect]
     Active Substance: DICLOFENAC SODIUM
     Indication: Product used for unknown indication
  98. DICLOFENAC SODIUM [Suspect]
     Active Substance: DICLOFENAC SODIUM
     Route: 065
  99. DICLOFENAC SODIUM [Suspect]
     Active Substance: DICLOFENAC SODIUM
     Route: 065
  100. DICLOFENAC SODIUM [Suspect]
     Active Substance: DICLOFENAC SODIUM
  101. DIPHENHYDRAMINE [Suspect]
     Active Substance: DIPHENHYDRAMINE
     Indication: Product used for unknown indication
  102. DIPHENHYDRAMINE [Suspect]
     Active Substance: DIPHENHYDRAMINE
  103. DIPHENHYDRAMINE [Suspect]
     Active Substance: DIPHENHYDRAMINE
     Route: 065
  104. DIPHENHYDRAMINE [Suspect]
     Active Substance: DIPHENHYDRAMINE
     Route: 065
  105. DIPHENHYDRAMINE [Suspect]
     Active Substance: DIPHENHYDRAMINE
     Dosage: 75 MILLIGRAM, QD (1 EVERY 1 DAYS)
  106. DIPHENHYDRAMINE [Suspect]
     Active Substance: DIPHENHYDRAMINE
     Dosage: 75 MILLIGRAM, QD (1 EVERY 1 DAYS)
  107. DIPHENHYDRAMINE [Suspect]
     Active Substance: DIPHENHYDRAMINE
     Dosage: 75 MILLIGRAM, QD (1 EVERY 1 DAYS)
     Route: 065
  108. DIPHENHYDRAMINE [Suspect]
     Active Substance: DIPHENHYDRAMINE
     Dosage: 75 MILLIGRAM, QD (1 EVERY 1 DAYS)
     Route: 065
  109. FLOVENT [Suspect]
     Active Substance: FLUTICASONE PROPIONATE
     Indication: Product used for unknown indication
  110. FLOVENT [Suspect]
     Active Substance: FLUTICASONE PROPIONATE
     Route: 065
  111. FLOVENT [Suspect]
     Active Substance: FLUTICASONE PROPIONATE
     Route: 065
  112. FLOVENT [Suspect]
     Active Substance: FLUTICASONE PROPIONATE
  113. FLUCONAZOLE [Suspect]
     Active Substance: FLUCONAZOLE
     Indication: Product used for unknown indication
  114. FLUCONAZOLE [Suspect]
     Active Substance: FLUCONAZOLE
     Route: 065
  115. FLUCONAZOLE [Suspect]
     Active Substance: FLUCONAZOLE
     Route: 065
  116. FLUCONAZOLE [Suspect]
     Active Substance: FLUCONAZOLE
  117. FLUTICASONE PROPIONATE [Suspect]
     Active Substance: FLUTICASONE PROPIONATE
     Indication: Product used for unknown indication
     Dosage: 1000 MILLIGRAM, QD (1 EVERY 1 DAYS)
  118. FLUTICASONE PROPIONATE [Suspect]
     Active Substance: FLUTICASONE PROPIONATE
     Dosage: 1000 MILLIGRAM, QD (1 EVERY 1 DAYS)
  119. FLUTICASONE PROPIONATE [Suspect]
     Active Substance: FLUTICASONE PROPIONATE
     Dosage: 1000 MILLIGRAM, QD (1 EVERY 1 DAYS)
     Route: 065
  120. FLUTICASONE PROPIONATE [Suspect]
     Active Substance: FLUTICASONE PROPIONATE
     Dosage: 1000 MILLIGRAM, QD (1 EVERY 1 DAYS)
     Route: 065
  121. FLUTICASONE PROPIONATE [Suspect]
     Active Substance: FLUTICASONE PROPIONATE
     Dosage: 500 MILLIGRAM, QD (1 EVERY 1 DAYS)
  122. FLUTICASONE PROPIONATE [Suspect]
     Active Substance: FLUTICASONE PROPIONATE
     Dosage: 500 MILLIGRAM, QD (1 EVERY 1 DAYS)
  123. FLUTICASONE PROPIONATE [Suspect]
     Active Substance: FLUTICASONE PROPIONATE
     Dosage: 500 MILLIGRAM, QD (1 EVERY 1 DAYS)
     Route: 065
  124. FLUTICASONE PROPIONATE [Suspect]
     Active Substance: FLUTICASONE PROPIONATE
     Dosage: 500 MILLIGRAM, QD (1 EVERY 1 DAYS)
     Route: 065
  125. FLUTICASONE PROPIONATE [Suspect]
     Active Substance: FLUTICASONE PROPIONATE
  126. FLUTICASONE PROPIONATE [Suspect]
     Active Substance: FLUTICASONE PROPIONATE
     Route: 065
  127. FLUTICASONE PROPIONATE [Suspect]
     Active Substance: FLUTICASONE PROPIONATE
  128. FLUTICASONE PROPIONATE [Suspect]
     Active Substance: FLUTICASONE PROPIONATE
     Route: 065
  129. FUROSEMIDE [Suspect]
     Active Substance: FUROSEMIDE
     Indication: Product used for unknown indication
  130. FUROSEMIDE [Suspect]
     Active Substance: FUROSEMIDE
     Route: 065
  131. FUROSEMIDE [Suspect]
     Active Substance: FUROSEMIDE
     Route: 065
  132. FUROSEMIDE [Suspect]
     Active Substance: FUROSEMIDE
  133. HUMIRA [Suspect]
     Active Substance: ADALIMUMAB
     Indication: Product used for unknown indication
  134. HUMIRA [Suspect]
     Active Substance: ADALIMUMAB
     Route: 058
  135. HUMIRA [Suspect]
     Active Substance: ADALIMUMAB
     Route: 058
  136. HUMIRA [Suspect]
     Active Substance: ADALIMUMAB
  137. HYDROMORPHONE [Suspect]
     Active Substance: HYDROMORPHONE
     Indication: Product used for unknown indication
  138. HYDROMORPHONE [Suspect]
     Active Substance: HYDROMORPHONE
     Route: 065
  139. HYDROMORPHONE [Suspect]
     Active Substance: HYDROMORPHONE
     Route: 065
  140. HYDROMORPHONE [Suspect]
     Active Substance: HYDROMORPHONE
  141. HYDROMORPHONE HYDROCHLORIDE [Suspect]
     Active Substance: HYDROMORPHONE HYDROCHLORIDE
     Indication: Product used for unknown indication
  142. HYDROMORPHONE HYDROCHLORIDE [Suspect]
     Active Substance: HYDROMORPHONE HYDROCHLORIDE
     Route: 065
  143. HYDROMORPHONE HYDROCHLORIDE [Suspect]
     Active Substance: HYDROMORPHONE HYDROCHLORIDE
     Route: 065
  144. HYDROMORPHONE HYDROCHLORIDE [Suspect]
     Active Substance: HYDROMORPHONE HYDROCHLORIDE
  145. KETOPROFEN [Suspect]
     Active Substance: KETOPROFEN
     Indication: Product used for unknown indication
  146. KETOPROFEN [Suspect]
     Active Substance: KETOPROFEN
     Route: 065
  147. KETOPROFEN [Suspect]
     Active Substance: KETOPROFEN
     Route: 065
  148. KETOPROFEN [Suspect]
     Active Substance: KETOPROFEN
  149. METHYLPREDNISOLONE ACETATE [Suspect]
     Active Substance: METHYLPREDNISOLONE ACETATE
     Indication: Product used for unknown indication
     Dosage: UNK, QD (1 EVERY 1 DAYS)
     Route: 065
  150. METHYLPREDNISOLONE ACETATE [Suspect]
     Active Substance: METHYLPREDNISOLONE ACETATE
     Dosage: UNK, QD (1 EVERY 1 DAYS)
  151. METHYLPREDNISOLONE ACETATE [Suspect]
     Active Substance: METHYLPREDNISOLONE ACETATE
     Dosage: UNK, QD (1 EVERY 1 DAYS)
  152. METHYLPREDNISOLONE ACETATE [Suspect]
     Active Substance: METHYLPREDNISOLONE ACETATE
     Dosage: UNK, QD (1 EVERY 1 DAYS)
     Route: 065
  153. METHYLPREDNISOLONE ACETATE [Suspect]
     Active Substance: METHYLPREDNISOLONE ACETATE
     Route: 065
  154. METHYLPREDNISOLONE ACETATE [Suspect]
     Active Substance: METHYLPREDNISOLONE ACETATE
  155. METHYLPREDNISOLONE ACETATE [Suspect]
     Active Substance: METHYLPREDNISOLONE ACETATE
  156. METHYLPREDNISOLONE ACETATE [Suspect]
     Active Substance: METHYLPREDNISOLONE ACETATE
     Route: 065
  157. METHYLPREDNISOLONE ACETATE [Suspect]
     Active Substance: METHYLPREDNISOLONE ACETATE
  158. METHYLPREDNISOLONE ACETATE [Suspect]
     Active Substance: METHYLPREDNISOLONE ACETATE
  159. METHYLPREDNISOLONE ACETATE [Suspect]
     Active Substance: METHYLPREDNISOLONE ACETATE
     Route: 065
  160. METHYLPREDNISOLONE ACETATE [Suspect]
     Active Substance: METHYLPREDNISOLONE ACETATE
     Route: 065
  161. METHYLPREDNISOLONE ACETATE [Suspect]
     Active Substance: METHYLPREDNISOLONE ACETATE
     Dosage: 1 DOSAGE FORM, QD (1 EVERY 1 DAYS)
  162. METHYLPREDNISOLONE ACETATE [Suspect]
     Active Substance: METHYLPREDNISOLONE ACETATE
     Dosage: 1 DOSAGE FORM, QD (1 EVERY 1 DAYS)
  163. METHYLPREDNISOLONE ACETATE [Suspect]
     Active Substance: METHYLPREDNISOLONE ACETATE
     Dosage: 1 DOSAGE FORM, QD (1 EVERY 1 DAYS)
     Route: 065
  164. METHYLPREDNISOLONE ACETATE [Suspect]
     Active Substance: METHYLPREDNISOLONE ACETATE
     Dosage: 1 DOSAGE FORM, QD (1 EVERY 1 DAYS)
     Route: 065
  165. METHYLPREDNISOLONE ACETATE [Suspect]
     Active Substance: METHYLPREDNISOLONE ACETATE
     Indication: Product used for unknown indication
  166. METHYLPREDNISOLONE ACETATE [Suspect]
     Active Substance: METHYLPREDNISOLONE ACETATE
     Route: 065
  167. METHYLPREDNISOLONE ACETATE [Suspect]
     Active Substance: METHYLPREDNISOLONE ACETATE
     Route: 065
  168. METHYLPREDNISOLONE ACETATE [Suspect]
     Active Substance: METHYLPREDNISOLONE ACETATE
  169. MONTELUKAST SODIUM [Suspect]
     Active Substance: MONTELUKAST SODIUM
     Indication: Product used for unknown indication
  170. MONTELUKAST SODIUM [Suspect]
     Active Substance: MONTELUKAST SODIUM
     Route: 065
  171. MONTELUKAST SODIUM [Suspect]
     Active Substance: MONTELUKAST SODIUM
     Route: 065
  172. MONTELUKAST SODIUM [Suspect]
     Active Substance: MONTELUKAST SODIUM
  173. MOXIFLOXACIN HYDROCHLORIDE [Suspect]
     Active Substance: MOXIFLOXACIN HYDROCHLORIDE
     Indication: Product used for unknown indication
  174. MOXIFLOXACIN HYDROCHLORIDE [Suspect]
     Active Substance: MOXIFLOXACIN HYDROCHLORIDE
     Route: 065
  175. MOXIFLOXACIN HYDROCHLORIDE [Suspect]
     Active Substance: MOXIFLOXACIN HYDROCHLORIDE
     Route: 065
  176. MOXIFLOXACIN HYDROCHLORIDE [Suspect]
     Active Substance: MOXIFLOXACIN HYDROCHLORIDE
  177. NORTRIPTYLINE HYDROCHLORIDE [Suspect]
     Active Substance: NORTRIPTYLINE HYDROCHLORIDE
     Indication: Product used for unknown indication
  178. NORTRIPTYLINE HYDROCHLORIDE [Suspect]
     Active Substance: NORTRIPTYLINE HYDROCHLORIDE
  179. NORTRIPTYLINE HYDROCHLORIDE [Suspect]
     Active Substance: NORTRIPTYLINE HYDROCHLORIDE
     Route: 065
  180. NORTRIPTYLINE HYDROCHLORIDE [Suspect]
     Active Substance: NORTRIPTYLINE HYDROCHLORIDE
     Route: 065
  181. NORTRIPTYLINE HYDROCHLORIDE [Suspect]
     Active Substance: NORTRIPTYLINE HYDROCHLORIDE
  182. NORTRIPTYLINE HYDROCHLORIDE [Suspect]
     Active Substance: NORTRIPTYLINE HYDROCHLORIDE
  183. NORTRIPTYLINE HYDROCHLORIDE [Suspect]
     Active Substance: NORTRIPTYLINE HYDROCHLORIDE
     Route: 065
  184. NORTRIPTYLINE HYDROCHLORIDE [Suspect]
     Active Substance: NORTRIPTYLINE HYDROCHLORIDE
     Route: 065
  185. ONDANSETRON [Suspect]
     Active Substance: ONDANSETRON
     Indication: Product used for unknown indication
  186. ONDANSETRON [Suspect]
     Active Substance: ONDANSETRON
     Route: 065
  187. ONDANSETRON [Suspect]
     Active Substance: ONDANSETRON
     Route: 065
  188. ONDANSETRON [Suspect]
     Active Substance: ONDANSETRON
  189. ORENCIA [Suspect]
     Active Substance: ABATACEPT
     Indication: Product used for unknown indication
     Dosage: 1 DOSAGE FORM, QD (1 EVERY 1 DAYS)
  190. ORENCIA [Suspect]
     Active Substance: ABATACEPT
     Dosage: 1 DOSAGE FORM, QD (1 EVERY 1 DAYS)
     Route: 042
  191. ORENCIA [Suspect]
     Active Substance: ABATACEPT
     Dosage: 1 DOSAGE FORM, QD (1 EVERY 1 DAYS)
     Route: 042
  192. ORENCIA [Suspect]
     Active Substance: ABATACEPT
     Dosage: 1 DOSAGE FORM, QD (1 EVERY 1 DAYS)
  193. PANTOPRAZOLE [Suspect]
     Active Substance: PANTOPRAZOLE
     Indication: Product used for unknown indication
  194. PANTOPRAZOLE [Suspect]
     Active Substance: PANTOPRAZOLE
     Route: 065
  195. PANTOPRAZOLE [Suspect]
     Active Substance: PANTOPRAZOLE
     Route: 065
  196. PANTOPRAZOLE [Suspect]
     Active Substance: PANTOPRAZOLE
  197. PANTOPRAZOLE MAGNESIUM [Suspect]
     Active Substance: PANTOPRAZOLE MAGNESIUM
     Indication: Product used for unknown indication
  198. PANTOPRAZOLE MAGNESIUM [Suspect]
     Active Substance: PANTOPRAZOLE MAGNESIUM
     Route: 065
  199. PANTOPRAZOLE MAGNESIUM [Suspect]
     Active Substance: PANTOPRAZOLE MAGNESIUM
     Route: 065
  200. PANTOPRAZOLE MAGNESIUM [Suspect]
     Active Substance: PANTOPRAZOLE MAGNESIUM
  201. HERBALS\PLANTAGO OVATA LEAF [Suspect]
     Active Substance: HERBALS\PLANTAGO OVATA LEAF
     Indication: Product used for unknown indication
  202. HERBALS\PLANTAGO OVATA LEAF [Suspect]
     Active Substance: HERBALS\PLANTAGO OVATA LEAF
     Route: 065
  203. HERBALS\PLANTAGO OVATA LEAF [Suspect]
     Active Substance: HERBALS\PLANTAGO OVATA LEAF
     Route: 065
  204. HERBALS\PLANTAGO OVATA LEAF [Suspect]
     Active Substance: HERBALS\PLANTAGO OVATA LEAF
  205. PROGESTERONE [Suspect]
     Active Substance: PROGESTERONE
     Indication: Product used for unknown indication
  206. PROGESTERONE [Suspect]
     Active Substance: PROGESTERONE
  207. PROGESTERONE [Suspect]
     Active Substance: PROGESTERONE
     Route: 065
  208. PROGESTERONE [Suspect]
     Active Substance: PROGESTERONE
     Route: 065
  209. PROGESTERONE [Suspect]
     Active Substance: PROGESTERONE
  210. PROGESTERONE [Suspect]
     Active Substance: PROGESTERONE
  211. PROGESTERONE [Suspect]
     Active Substance: PROGESTERONE
     Route: 030
  212. PROGESTERONE [Suspect]
     Active Substance: PROGESTERONE
     Route: 030
  213. PSYLLIUM HUSK [Suspect]
     Active Substance: PSYLLIUM HUSK
     Indication: Product used for unknown indication
  214. PSYLLIUM HUSK [Suspect]
     Active Substance: PSYLLIUM HUSK
     Route: 065
  215. PSYLLIUM HUSK [Suspect]
     Active Substance: PSYLLIUM HUSK
     Route: 065
  216. PSYLLIUM HUSK [Suspect]
     Active Substance: PSYLLIUM HUSK
  217. QUETIAPINE FUMARATE [Suspect]
     Active Substance: QUETIAPINE FUMARATE
     Indication: Product used for unknown indication
  218. QUETIAPINE FUMARATE [Suspect]
     Active Substance: QUETIAPINE FUMARATE
     Route: 065
  219. QUETIAPINE FUMARATE [Suspect]
     Active Substance: QUETIAPINE FUMARATE
     Route: 065
  220. QUETIAPINE FUMARATE [Suspect]
     Active Substance: QUETIAPINE FUMARATE
  221. RANITIDINE HYDROCHLORIDE [Suspect]
     Active Substance: RANITIDINE HYDROCHLORIDE
     Indication: Product used for unknown indication
     Dosage: 20 MILLIGRAM, QD (1 EVERY 1 DAYS)
  222. RANITIDINE HYDROCHLORIDE [Suspect]
     Active Substance: RANITIDINE HYDROCHLORIDE
     Dosage: 20 MILLIGRAM, QD (1 EVERY 1 DAYS)
     Route: 065
  223. RANITIDINE HYDROCHLORIDE [Suspect]
     Active Substance: RANITIDINE HYDROCHLORIDE
     Dosage: 20 MILLIGRAM, QD (1 EVERY 1 DAYS)
     Route: 065
  224. RANITIDINE HYDROCHLORIDE [Suspect]
     Active Substance: RANITIDINE HYDROCHLORIDE
     Dosage: 20 MILLIGRAM, QD (1 EVERY 1 DAYS)
  225. CETIRIZINE HYDROCHLORIDE\PSEUDOEPHEDRINE HYDROCHLORIDE [Suspect]
     Active Substance: CETIRIZINE HYDROCHLORIDE\PSEUDOEPHEDRINE HYDROCHLORIDE
     Indication: Product used for unknown indication
  226. CETIRIZINE HYDROCHLORIDE\PSEUDOEPHEDRINE HYDROCHLORIDE [Suspect]
     Active Substance: CETIRIZINE HYDROCHLORIDE\PSEUDOEPHEDRINE HYDROCHLORIDE
  227. CETIRIZINE HYDROCHLORIDE\PSEUDOEPHEDRINE HYDROCHLORIDE [Suspect]
     Active Substance: CETIRIZINE HYDROCHLORIDE\PSEUDOEPHEDRINE HYDROCHLORIDE
     Route: 065
  228. CETIRIZINE HYDROCHLORIDE\PSEUDOEPHEDRINE HYDROCHLORIDE [Suspect]
     Active Substance: CETIRIZINE HYDROCHLORIDE\PSEUDOEPHEDRINE HYDROCHLORIDE
     Route: 065
  229. CETIRIZINE HYDROCHLORIDE\PSEUDOEPHEDRINE HYDROCHLORIDE [Suspect]
     Active Substance: CETIRIZINE HYDROCHLORIDE\PSEUDOEPHEDRINE HYDROCHLORIDE
     Dosage: 20 MILLIGRAM, QD (1 EVERY 1 DAYS)
  230. CETIRIZINE HYDROCHLORIDE\PSEUDOEPHEDRINE HYDROCHLORIDE [Suspect]
     Active Substance: CETIRIZINE HYDROCHLORIDE\PSEUDOEPHEDRINE HYDROCHLORIDE
     Dosage: 20 MILLIGRAM, QD (1 EVERY 1 DAYS)
  231. CETIRIZINE HYDROCHLORIDE\PSEUDOEPHEDRINE HYDROCHLORIDE [Suspect]
     Active Substance: CETIRIZINE HYDROCHLORIDE\PSEUDOEPHEDRINE HYDROCHLORIDE
     Dosage: 20 MILLIGRAM, QD (1 EVERY 1 DAYS)
     Route: 065
  232. CETIRIZINE HYDROCHLORIDE\PSEUDOEPHEDRINE HYDROCHLORIDE [Suspect]
     Active Substance: CETIRIZINE HYDROCHLORIDE\PSEUDOEPHEDRINE HYDROCHLORIDE
     Dosage: 20 MILLIGRAM, QD (1 EVERY 1 DAYS)
     Route: 065
  233. REMICADE [Suspect]
     Active Substance: INFLIXIMAB
     Indication: Product used for unknown indication
  234. REMICADE [Suspect]
     Active Substance: INFLIXIMAB
     Route: 065
  235. REMICADE [Suspect]
     Active Substance: INFLIXIMAB
     Route: 065
  236. REMICADE [Suspect]
     Active Substance: INFLIXIMAB
  237. RESTORIL [Suspect]
     Active Substance: TEMAZEPAM
     Indication: Product used for unknown indication
  238. RESTORIL [Suspect]
     Active Substance: TEMAZEPAM
     Route: 065
  239. RESTORIL [Suspect]
     Active Substance: TEMAZEPAM
     Route: 065
  240. RESTORIL [Suspect]
     Active Substance: TEMAZEPAM
  241. RITUXIMAB [Suspect]
     Active Substance: RITUXIMAB
     Indication: Rheumatoid arthritis
  242. RITUXIMAB [Suspect]
     Active Substance: RITUXIMAB
  243. RITUXIMAB [Suspect]
     Active Substance: RITUXIMAB
     Route: 042
  244. RITUXIMAB [Suspect]
     Active Substance: RITUXIMAB
     Route: 042
  245. RITUXIMAB [Suspect]
     Active Substance: RITUXIMAB
     Dosage: 1000 MILLIGRAM, QD (1 EVERY 1 DAYS)
  246. RITUXIMAB [Suspect]
     Active Substance: RITUXIMAB
     Dosage: 1000 MILLIGRAM, QD (1 EVERY 1 DAYS)
  247. RITUXIMAB [Suspect]
     Active Substance: RITUXIMAB
     Dosage: 1000 MILLIGRAM, QD (1 EVERY 1 DAYS)
     Route: 042
  248. RITUXIMAB [Suspect]
     Active Substance: RITUXIMAB
     Dosage: 1000 MILLIGRAM, QD (1 EVERY 1 DAYS)
     Route: 042
  249. ALBUTEROL [Suspect]
     Active Substance: ALBUTEROL
     Indication: Product used for unknown indication
  250. ALBUTEROL [Suspect]
     Active Substance: ALBUTEROL
     Route: 065
  251. ALBUTEROL [Suspect]
     Active Substance: ALBUTEROL
     Route: 065
  252. ALBUTEROL [Suspect]
     Active Substance: ALBUTEROL
  253. SENNA LEAF [Suspect]
     Active Substance: SENNA LEAF
     Indication: Product used for unknown indication
  254. SENNA LEAF [Suspect]
     Active Substance: SENNA LEAF
     Route: 065
  255. SENNA LEAF [Suspect]
     Active Substance: SENNA LEAF
     Route: 065
  256. SENNA LEAF [Suspect]
     Active Substance: SENNA LEAF
  257. SENOKOT [Suspect]
     Active Substance: SENNOSIDES
     Indication: Product used for unknown indication
  258. SENOKOT [Suspect]
     Active Substance: SENNOSIDES
     Route: 065
  259. SENOKOT [Suspect]
     Active Substance: SENNOSIDES
     Route: 065
  260. SENOKOT [Suspect]
     Active Substance: SENNOSIDES
  261. SINGULAIR [Suspect]
     Active Substance: MONTELUKAST SODIUM
     Indication: Product used for unknown indication
  262. SINGULAIR [Suspect]
     Active Substance: MONTELUKAST SODIUM
     Route: 065
  263. SINGULAIR [Suspect]
     Active Substance: MONTELUKAST SODIUM
     Route: 065
  264. SINGULAIR [Suspect]
     Active Substance: MONTELUKAST SODIUM
  265. PANTOPRAZOLE MAGNESIUM [Suspect]
     Active Substance: PANTOPRAZOLE MAGNESIUM
     Indication: Product used for unknown indication
  266. PANTOPRAZOLE MAGNESIUM [Suspect]
     Active Substance: PANTOPRAZOLE MAGNESIUM
     Route: 065
  267. PANTOPRAZOLE MAGNESIUM [Suspect]
     Active Substance: PANTOPRAZOLE MAGNESIUM
     Route: 065
  268. PANTOPRAZOLE MAGNESIUM [Suspect]
     Active Substance: PANTOPRAZOLE MAGNESIUM
  269. TEMAZEPAM [Suspect]
     Active Substance: TEMAZEPAM
     Indication: Product used for unknown indication
  270. TEMAZEPAM [Suspect]
     Active Substance: TEMAZEPAM
     Route: 065
  271. TEMAZEPAM [Suspect]
     Active Substance: TEMAZEPAM
     Route: 065
  272. TEMAZEPAM [Suspect]
     Active Substance: TEMAZEPAM
  273. TOCILIZUMAB [Suspect]
     Active Substance: TOCILIZUMAB
     Indication: Product used for unknown indication
  274. TOCILIZUMAB [Suspect]
     Active Substance: TOCILIZUMAB
  275. TOCILIZUMAB [Suspect]
     Active Substance: TOCILIZUMAB
     Route: 065
  276. TOCILIZUMAB [Suspect]
     Active Substance: TOCILIZUMAB
     Route: 065
  277. TOCILIZUMAB [Suspect]
     Active Substance: TOCILIZUMAB
  278. TOCILIZUMAB [Suspect]
     Active Substance: TOCILIZUMAB
  279. TOCILIZUMAB [Suspect]
     Active Substance: TOCILIZUMAB
     Route: 058
  280. TOCILIZUMAB [Suspect]
     Active Substance: TOCILIZUMAB
     Route: 058
  281. TYLENOL [Suspect]
     Active Substance: ACETAMINOPHEN
     Indication: Product used for unknown indication
  282. TYLENOL [Suspect]
     Active Substance: ACETAMINOPHEN
     Route: 065
  283. TYLENOL [Suspect]
     Active Substance: ACETAMINOPHEN
     Route: 065
  284. TYLENOL [Suspect]
     Active Substance: ACETAMINOPHEN
  285. VENTOLIN [Suspect]
     Active Substance: ALBUTEROL SULFATE
     Indication: Product used for unknown indication
  286. VENTOLIN [Suspect]
     Active Substance: ALBUTEROL SULFATE
     Route: 065
  287. VENTOLIN [Suspect]
     Active Substance: ALBUTEROL SULFATE
     Route: 065
  288. VENTOLIN [Suspect]
     Active Substance: ALBUTEROL SULFATE
  289. WELLBUTRIN [Suspect]
     Active Substance: BUPROPION HYDROCHLORIDE
     Indication: Product used for unknown indication
  290. WELLBUTRIN [Suspect]
     Active Substance: BUPROPION HYDROCHLORIDE
     Route: 065
  291. WELLBUTRIN [Suspect]
     Active Substance: BUPROPION HYDROCHLORIDE
     Route: 065
  292. WELLBUTRIN [Suspect]
     Active Substance: BUPROPION HYDROCHLORIDE
  293. ZOPICLONE [Suspect]
     Active Substance: ZOPICLONE
     Indication: Product used for unknown indication
  294. ZOPICLONE [Suspect]
     Active Substance: ZOPICLONE
     Route: 065
  295. ZOPICLONE [Suspect]
     Active Substance: ZOPICLONE
     Route: 065
  296. ZOPICLONE [Suspect]
     Active Substance: ZOPICLONE
  297. DOLUTEGRAVIR SODIUM [Concomitant]
     Active Substance: DOLUTEGRAVIR SODIUM
     Indication: Product used for unknown indication
  298. DOLUTEGRAVIR SODIUM [Concomitant]
     Active Substance: DOLUTEGRAVIR SODIUM
     Route: 065
  299. DOLUTEGRAVIR SODIUM [Concomitant]
     Active Substance: DOLUTEGRAVIR SODIUM
     Route: 065
  300. DOLUTEGRAVIR SODIUM [Concomitant]
     Active Substance: DOLUTEGRAVIR SODIUM

REACTIONS (9)
  - Asthma [Not Recovered/Not Resolved]
  - Rheumatoid arthritis [Not Recovered/Not Resolved]
  - Rash erythematous [Not Recovered/Not Resolved]
  - Upper respiratory tract infection [Not Recovered/Not Resolved]
  - Infection [Not Recovered/Not Resolved]
  - Pyrexia [Not Recovered/Not Resolved]
  - Rash [Not Recovered/Not Resolved]
  - Thrombocytopenia [Not Recovered/Not Resolved]
  - Exposure during pregnancy [Not Recovered/Not Resolved]
